FAERS Safety Report 24747067 (Version 3)
Quarter: 2025Q2

REPORT INFORMATION
  Report Type: Spontaneous
  Country: US (occurrence: US)
  Receive Date: 20241218
  Receipt Date: 20250401
  Transmission Date: 20250717
  Serious: Yes (Death, Life-Threatening, Hospitalization, Other)
  Sender: AUROBINDO
  Company Number: US-MLMSERVICE-20241127-PI268898-00152-1

PATIENT
  Age: 58 Year
  Sex: Male

DRUGS (8)
  1. FLUOROURACIL [Interacting]
     Active Substance: FLUOROURACIL
     Indication: Adenocarcinoma of colon
     Dosage: 400 MG/ M2 ON DAY 1 AND A SINGLE 46-HOUR FU INFUSION (2.4 G/M2)
     Route: 065
  2. FLUOROURACIL [Interacting]
     Active Substance: FLUOROURACIL
     Indication: Metastases to liver
     Route: 065
  3. LEUCOVORIN [Concomitant]
     Active Substance: LEUCOVORIN\LEUCOVORIN CALCIUM
     Indication: Colon cancer
     Dosage: 400 MILLIGRAM/SQ. METER, ONCE A DAY [ON DAY 1]
     Route: 065
  4. LEUCOVORIN [Concomitant]
     Active Substance: LEUCOVORIN\LEUCOVORIN CALCIUM
     Indication: Metastases to liver
  5. OXALIPLATIN [Concomitant]
     Active Substance: OXALIPLATIN
     Indication: Colon cancer
     Dosage: 100 MILLIGRAM/SQ. METER, ONCE A DAY [2-HOUR INFUSION]
     Route: 065
  6. OXALIPLATIN [Concomitant]
     Active Substance: OXALIPLATIN
     Indication: Metastases to liver
  7. PIPERACILLIN AND TAZOBACTAM [Concomitant]
     Active Substance: PIPERACILLIN SODIUM\TAZOBACTAM SODIUM
     Indication: Product used for unknown indication
     Route: 065
  8. ATROPINE [Concomitant]
     Active Substance: ATROPINE
     Indication: Bradycardia
     Route: 065

REACTIONS (27)
  - Colitis [Fatal]
  - Sepsis [Fatal]
  - Renal infarct [Fatal]
  - Splenic infarction [Fatal]
  - Middle cerebral artery stroke [Fatal]
  - Acute respiratory distress syndrome [Fatal]
  - Renal failure [Fatal]
  - Multiple organ dysfunction syndrome [Fatal]
  - Cardiac arrest [Fatal]
  - Myelosuppression [Fatal]
  - Bradycardia [Fatal]
  - Hypernatraemia [Fatal]
  - Mucosal inflammation [Fatal]
  - Blood lactic acid increased [Fatal]
  - Pleural effusion [Fatal]
  - Neutropenic colitis [Fatal]
  - Drug-genetic interaction [Fatal]
  - Atrial fibrillation [Fatal]
  - Neutropenia [Fatal]
  - Toxicity to various agents [Fatal]
  - Dihydropyrimidine dehydrogenase genotyping [Fatal]
  - Pancytopenia [Fatal]
  - Gastrointestinal toxicity [Fatal]
  - Epigastric discomfort [Unknown]
  - Fatigue [Unknown]
  - Nausea [Unknown]
  - Vomiting [Unknown]
